FAERS Safety Report 8204579-3 (Version None)
Quarter: 2012Q1

REPORT INFORMATION
  Report Type: 
  Country: None (occurrence: None)
  Receive Date: 20120313
  Receipt Date: 20120306
  Transmission Date: 20120608
  Serious: Yes (Other)
  Sender: FDA-Public Use
  Company Number: JP-PFIZER INC-2011211245

PATIENT
  Sex: Female

DRUGS (5)
  1. LYRICA [Suspect]
     Dosage: 25 MG, 1X/DAY
     Route: 048
     Dates: start: 20110701
  2. VITAMIN D [Concomitant]
  3. URSO 250 [Concomitant]
  4. AMINO ACIDS [Concomitant]
  5. VITAMIN B-12 [Concomitant]

REACTIONS (8)
  - DIZZINESS [None]
  - SOMNOLENCE [None]
  - HEAD INJURY [None]
  - OEDEMA [None]
  - ABNORMAL FAECES [None]
  - FALL [None]
  - PAIN [None]
  - FEELING ABNORMAL [None]
